FAERS Safety Report 5325605-5 (Version None)
Quarter: 2007Q2

REPORT INFORMATION
  Report Type: 
  Country: None (occurrence: None)
  Receive Date: 20070515
  Receipt Date: 20070504
  Transmission Date: 20071010
  Serious: Yes (Life-Threatening, Other)
  Sender: FDA-Public Use
  Company Number: CA-PFIZER INC-2007021944

PATIENT
  Sex: Female
  Weight: 38.6 kg

DRUGS (8)
  1. SU-011,248 [Suspect]
     Indication: NON-SMALL CELL LUNG CANCER
     Route: 048
     Dates: start: 20070104, end: 20070124
  2. SU-011,248 [Suspect]
     Route: 048
     Dates: start: 20070216, end: 20070315
  3. FOSAMAX [Concomitant]
     Route: 048
  4. SYNTHROID [Concomitant]
     Route: 048
     Dates: start: 20010101
  5. APO-FLURAZEPAM [Concomitant]
     Route: 048
     Dates: start: 20030101
  6. CELEXA [Concomitant]
     Route: 048
     Dates: start: 20060512
  7. MALTLEVOL [Concomitant]
     Route: 048
     Dates: start: 20060906
  8. LOPRESSOR [Concomitant]
     Route: 048
     Dates: start: 20070124

REACTIONS (2)
  - COGNITIVE DISORDER [None]
  - THROMBOCYTOPENIA [None]
